FAERS Safety Report 7363189-0 (Version None)
Quarter: 2011Q1

REPORT INFORMATION
  Report Type: 
  Country: None (occurrence: None)
  Receive Date: 20110321
  Receipt Date: 20100825
  Transmission Date: 20110831
  Serious: Yes (Other)
  Sender: FDA-Public Use
  Company Number: US-BAYER-200938742NA

PATIENT
  Sex: Female

DRUGS (4)
  1. NITROFURANTOIN [Concomitant]
  2. YAZ [Suspect]
     Dosage: 1 DF (DAILY DOSE), QD, ORAL
     Route: 048
     Dates: start: 20050101, end: 20081201
  3. UNCODEABLE ^UNCLASSIFIABLE^ [Concomitant]
  4. AMOXICILLIN [Concomitant]
     Indication: BRONCHITIS
     Dosage: UNK
     Dates: start: 20081201

REACTIONS (3)
  - PANCREATITIS [None]
  - GALLBLADDER CHOLESTEROLOSIS [None]
  - CHOLELITHIASIS [None]
